FAERS Safety Report 14438153 (Version 1)
Quarter: 2018Q1

REPORT INFORMATION
  Report Type: Spontaneous
  Country: ES (occurrence: ES)
  Receive Date: 20180125
  Receipt Date: 20180125
  Transmission Date: 20180509
  Serious: Yes (Hospitalization)
  Sender: FDA-Public Use
  Company Number: ES-AUROBINDO-AUR-APL-2018-003333

PATIENT
  Age: 77 Year
  Sex: Male

DRUGS (6)
  1. SIMVASTATIN. [Suspect]
     Active Substance: SIMVASTATIN
     Indication: DYSLIPIDAEMIA
     Dosage: 10 MG, UNK
     Route: 048
     Dates: start: 201511, end: 20160211
  2. AUGMENTINE PLUS [Interacting]
     Active Substance: AMOXICILLIN\CLAVULANIC ACID
     Indication: TOOTH ABSCESS
     Dosage: 1 G, UNK
     Route: 048
     Dates: start: 20160116, end: 20160123
  3. PARACETAMOL [Concomitant]
     Active Substance: ACETAMINOPHEN
     Indication: TOOTH ABSCESS
     Dosage: 3 G, UNK
     Route: 048
     Dates: start: 20160116, end: 20160123
  4. ENALAPRIL MALEATO [Concomitant]
     Active Substance: ENALAPRIL MALEATE
     Indication: HYPERTENSION
     Dosage: 20 MG, UNK
     Route: 048
     Dates: start: 200510
  5. ADIRO [Concomitant]
     Active Substance: ASPIRIN
     Indication: PRODUCT USED FOR UNKNOWN INDICATION
     Dosage: 100 MG, UNK
     Route: 048
     Dates: start: 201405
  6. URBASON                            /00049601/ [Concomitant]
     Active Substance: METHYLPREDNISOLONE
     Indication: TOOTH ABSCESS
     Route: 048
     Dates: start: 20160116, end: 20160125

REACTIONS (1)
  - Hepatitis cholestatic [Recovered/Resolved]

NARRATIVE: CASE EVENT DATE: 20160201
